FAERS Safety Report 4575138-9 (Version None)
Quarter: 2005Q1

REPORT INFORMATION
  Report Type: 
  Country: None (occurrence: None)
  Receive Date: 20050208
  Receipt Date: 20040803
  Transmission Date: 20050727
  Serious: Yes (Hospitalization)
  Sender: FDA-Public Use
  Company Number: JP-MERCK-0408USA00382

PATIENT
  Age: 46 Year
  Sex: Male

DRUGS (7)
  1. PEPCID [Suspect]
     Indication: PROPHYLAXIS
     Route: 048
     Dates: start: 20040615, end: 20040729
  2. LOXONIN [Suspect]
     Indication: HEADACHE
     Route: 065
     Dates: start: 20040615, end: 20040729
  3. LOXONIN [Suspect]
     Indication: ARTHRALGIA
     Route: 065
     Dates: start: 20040615, end: 20040729
  4. PHENOBAL [Suspect]
     Indication: BRAIN CONTUSION
     Route: 048
     Dates: start: 20040615, end: 20040729
  5. AZULENE SULFONATE SODIUM AND LEVOGLUTAMIDE [Concomitant]
     Route: 048
     Dates: start: 20040615, end: 20040729
  6. MAGNESIUM (UNSPECIFIED) [Concomitant]
     Route: 048
     Dates: start: 20040615, end: 20040729
  7. [THERAPY UNSPECIFIED] [Concomitant]
     Route: 048
     Dates: start: 20040615, end: 20040729

REACTIONS (8)
  - AGRANULOCYTOSIS [None]
  - BIOPSY BONE MARROW ABNORMAL [None]
  - DRUG INTERACTION [None]
  - MOUTH ULCERATION [None]
  - PURULENT DISCHARGE [None]
  - STOMATITIS NECROTISING [None]
  - TONGUE COATED [None]
  - TONSILLITIS [None]
